FAERS Safety Report 9860130 (Version 2)
Quarter: 2014Q1

REPORT INFORMATION
  Report Type: Spontaneous
  Country: IT (occurrence: IT)
  Receive Date: 20140201
  Receipt Date: 20140331
  Transmission Date: 20141002
  Serious: Yes (Hospitalization)
  Sender: FDA-Public Use
  Company Number: IT-ROCHE-1342557

PATIENT
  Age: 57 Year
  Sex: Male

DRUGS (6)
  1. CELLCEPT [Suspect]
     Indication: LIVER TRANSPLANT
     Route: 065
     Dates: start: 20110401, end: 20120514
  2. CITALOPRAM [Concomitant]
     Route: 048
  3. OMEPRAZOLE [Concomitant]
     Route: 048
  4. DEURSIL [Concomitant]
     Route: 048
  5. LASIX [Concomitant]
     Route: 048
  6. KANRENOL [Concomitant]
     Route: 065

REACTIONS (2)
  - Neutropenia [Recovered/Resolved]
  - Bone marrow toxicity [Recovered/Resolved]
